FAERS Safety Report 21498372 (Version 1)
Quarter: 2022Q4

REPORT INFORMATION
  Report Type: Spontaneous
  Country: US (occurrence: US)
  Receive Date: 20221024
  Receipt Date: 20221024
  Transmission Date: 20230112
  Serious: Yes (Other)
  Sender: FDA-Public Use
  Company Number: US-SA-SAC20221021000609

PATIENT
  Age: 40 Year
  Sex: Female

DRUGS (1)
  1. DUPIXENT [Suspect]
     Active Substance: DUPILUMAB
     Dosage: 300 MG
     Route: 058

REACTIONS (8)
  - Uveitis [Unknown]
  - COVID-19 [Unknown]
  - Stress [Not Recovered/Not Resolved]
  - Hand dermatitis [Unknown]
  - Skin irritation [Unknown]
  - Erythema [Unknown]
  - Nasopharyngitis [Not Recovered/Not Resolved]
  - Pruritus [Unknown]

NARRATIVE: CASE EVENT DATE: 20220101
